FAERS Safety Report 18906220 (Version 1)
Quarter: 2021Q1

REPORT INFORMATION
  Report Type: Report from Study
  Country: US (occurrence: US)
  Receive Date: 20210217
  Receipt Date: 20210217
  Transmission Date: 20210420
  Serious: Yes (Other)
  Sender: FDA-Public Use
  Company Number: US-JAZZ-2021-US-002258

PATIENT
  Sex: Female

DRUGS (2)
  1. LEMBOREXANT [Concomitant]
     Active Substance: LEMBOREXANT
     Indication: NARCOLEPSY
  2. XYWAV [Suspect]
     Active Substance: CALCIUM OXYBATE\MAGNESIUM OXYBATE\POTASSIUM OXYBATE\SODIUM OXYBATE
     Indication: NARCOLEPSY
     Dosage: 4.5 GRAM, BID
     Route: 048
     Dates: start: 202012

REACTIONS (1)
  - Barrett^s oesophagus [Not Recovered/Not Resolved]
